FAERS Safety Report 7359822-X (Version None)
Quarter: 2011Q1

REPORT INFORMATION
  Report Type: 
  Country: None (occurrence: None)
  Receive Date: 20110317
  Receipt Date: 20110311
  Transmission Date: 20110831
  Serious: Yes (Life-Threatening, Hospitalization, Other)
  Sender: FDA-Public Use
  Company Number: GB-ROCHE-759676

PATIENT
  Sex: Female
  Weight: 77 kg

DRUGS (2)
  1. METFORMIN HCL [Concomitant]
  2. CAPECITABINE [Suspect]
     Dosage: LOWER DOSE
     Route: 048
     Dates: start: 20101123, end: 20101201

REACTIONS (5)
  - LOWER RESPIRATORY TRACT INFECTION [None]
  - INTESTINAL INFARCTION [None]
  - INTESTINAL OBSTRUCTION [None]
  - NEUTROPENIC COLITIS [None]
  - NEUTROPENIA [None]
